FAERS Safety Report 19950434 (Version 1)
Quarter: 2021Q4

REPORT INFORMATION
  Report Type: Spontaneous
  Country: US (occurrence: US)
  Receive Date: 20211011
  Receipt Date: 20211011
  Transmission Date: 20220303
  Serious: Yes (Hospitalization)
  Sender: FDA-Public Use
  Company Number: None

PATIENT
  Age: 38 Year
  Sex: Female

DRUGS (1)
  1. TACROLIMUS [Suspect]
     Active Substance: TACROLIMUS
     Dosage: ?          OTHER DOSE:1-1.5MG;
     Route: 048

REACTIONS (2)
  - Pneumonia [None]
  - Lung transplant [None]

NARRATIVE: CASE EVENT DATE: 20210827
